FAERS Safety Report 17050076 (Version 2)
Quarter: 2019Q4

REPORT INFORMATION
  Report Type: Spontaneous
  Country: US (occurrence: US)
  Receive Date: 20191119
  Receipt Date: 20191211
  Transmission Date: 20200122
  Serious: Yes (Other)
  Sender: FDA-Public Use
  Company Number: US-TEVA-2019-US-1138606

PATIENT
  Age: 25 Year
  Sex: Male

DRUGS (7)
  1. DOXYCYCLINE. [Concomitant]
     Active Substance: DOXYCYCLINE
     Indication: EVIDENCE BASED TREATMENT
     Route: 065
  2. ATOVAQUONE. [Concomitant]
     Active Substance: ATOVAQUONE
     Indication: EVIDENCE BASED TREATMENT
     Route: 065
  3. AZITHROMYCIN ANHYDROUS. [Concomitant]
     Active Substance: AZITHROMYCIN ANHYDROUS
     Indication: EVIDENCE BASED TREATMENT
     Route: 065
  4. CLINDAMYCIN. [Concomitant]
     Active Substance: CLINDAMYCIN
     Indication: EVIDENCE BASED TREATMENT
     Route: 065
  5. PIPERACILLIN/TAZOBACTAM [Concomitant]
     Active Substance: PIPERACILLIN SODIUM\TAZOBACTAM SODIUM
     Indication: EVIDENCE BASED TREATMENT
     Route: 065
  6. VANCOMYCIN [Concomitant]
     Active Substance: VANCOMYCIN
     Indication: EVIDENCE BASED TREATMENT
     Route: 065
  7. QUININE SULFATE. [Suspect]
     Active Substance: QUININE SULFATE
     Indication: EVIDENCE BASED TREATMENT
     Route: 065

REACTIONS (1)
  - Ototoxicity [Unknown]
